FAERS Safety Report 13435907 (Version 1)
Quarter: 2017Q2

REPORT INFORMATION
  Report Type: Spontaneous
  Country: US (occurrence: US)
  Receive Date: 20170412
  Receipt Date: 20170412
  Transmission Date: 20170830
  Serious: Yes (Other)
  Sender: FDA-Public Use
  Company Number: None

PATIENT
  Age: 51 Year
  Sex: Female
  Weight: 71.1 kg

DRUGS (1)
  1. GAMUNEX-C [Suspect]
     Active Substance: HUMAN IMMUNOGLOBULIN G
     Indication: POLYNEUROPATHY
     Dosage: ?          OTHER FREQUENCY:Q 3 WEEKS;?
     Route: 042
     Dates: start: 20170103, end: 20170412

REACTIONS (10)
  - Hypopnoea [None]
  - Weight decreased [None]
  - Cold sweat [None]
  - Hypertension [None]
  - Skin discolouration [None]
  - Sticky skin [None]
  - Dyspnoea [None]
  - Body temperature decreased [None]
  - Diarrhoea [None]
  - Musculoskeletal stiffness [None]

NARRATIVE: CASE EVENT DATE: 20170103
